FAERS Safety Report 16303246 (Version 2)
Quarter: 2019Q2

REPORT INFORMATION
  Report Type: Spontaneous
  Country: FR (occurrence: FR)
  Receive Date: 20190513
  Receipt Date: 20190514
  Transmission Date: 20190711
  Serious: Yes (Death)
  Sender: FDA-Public Use
  Company Number: FR-TEVA-2019-FR-1046479

PATIENT
  Age: 83 Year
  Sex: Male
  Weight: 76 kg

DRUGS (10)
  1. DECAPEPTYL (GONADORELIN) [Suspect]
     Active Substance: GONADORELIN
     Indication: PROSTATE CANCER
     Route: 030
     Dates: start: 20181105, end: 20190322
  2. ANDROCUR 100 MG, COMPRIME SECABLE [Suspect]
     Active Substance: CYPROTERONE ACETATE
     Indication: PROSTATE CANCER
     Dosage: 2 DOSAGE FORMS DAILY;
     Route: 048
     Dates: start: 20181105, end: 20190322
  3. CARTEOL LP 2 %, COLLYRE A LIBERATION PROLONGEE [Suspect]
     Active Substance: CARTEOLOL HYDROCHLORIDE
     Indication: PRODUCT USED FOR UNKNOWN INDICATION
     Dosage: 1 DOSAGE FORMS DAILY;
     Route: 047
     Dates: end: 20190412
  4. ELISOR 20 MG, COMPRIME SECABLE [Suspect]
     Active Substance: PRAVASTATIN SODIUM
     Indication: MYOCARDIAL INFARCTION
     Dosage: 1 DOSAGE FORMS DAILY;
     Route: 048
     Dates: end: 20190322
  5. KARDEGIC [Suspect]
     Active Substance: ASPIRIN DL-LYSINE
     Indication: MYOCARDIAL INFARCTION
     Dosage: 1 DOSAGE FORMS DAILY;
     Route: 048
  6. SURBRONC [Suspect]
     Active Substance: AMBROXOL HYDROCHLORIDE
     Indication: CHRONIC OBSTRUCTIVE PULMONARY DISEASE
     Dosage: 1 DOSAGE FORMS DAILY;
     Route: 048
     Dates: end: 20190322
  7. TRIATEC (RAMIPRIL) [Suspect]
     Active Substance: RAMIPRIL
     Indication: MYOCARDIAL INFARCTION
     Dosage: 1 DOSAGE FORMS DAILY;
     Route: 048
     Dates: end: 20190322
  8. CARDENSIEL 1,25 MG, COMPRIME PELLICULE [Suspect]
     Active Substance: BISOPROLOL FUMARATE
     Indication: MYOCARDIAL INFARCTION
     Dosage: 1 DOSAGE FORMS DAILY;
     Route: 048
     Dates: end: 20190322
  9. TRAVATAN [Suspect]
     Active Substance: TRAVOPROST
     Indication: PRODUCT USED FOR UNKNOWN INDICATION
     Dosage: 1 DOSAGE FORMS DAILY;
     Route: 047
     Dates: end: 20190412
  10. ALPRAZOLAM. [Suspect]
     Active Substance: ALPRAZOLAM
     Indication: ANXIETY DISORDER
     Dosage: .5 MILLIGRAM DAILY;
     Route: 048
     Dates: end: 20190322

REACTIONS (1)
  - Hepatitis fulminant [Fatal]

NARRATIVE: CASE EVENT DATE: 20190316
